FAERS Safety Report 5913351-6 (Version None)
Quarter: 2008Q4

REPORT INFORMATION
  Report Type: 
  Country: None (occurrence: None)
  Receive Date: 20081009
  Receipt Date: 20080930
  Transmission Date: 20090506
  Serious: Yes (Hospitalization, Other)
  Sender: FDA-Public Use
  Company Number: PHBS2007JP16075

PATIENT
  Sex: Male

DRUGS (10)
  1. VOLTAREN [Suspect]
     Indication: PYREXIA
     Dosage: 50 MG
     Route: 054
     Dates: start: 20070816, end: 20070816
  2. GASTER D [Concomitant]
     Indication: GASTRITIS
     Dosage: 40 MG
     Route: 048
     Dates: start: 20070815, end: 20070817
  3. MEIACT [Concomitant]
     Indication: PHARYNGITIS
     Dosage: 300 MG
     Route: 048
     Dates: start: 20070814, end: 20070817
  4. PL [Concomitant]
     Indication: NASOPHARYNGITIS
     Dosage: 300 MG
     Route: 048
     Dates: start: 20070814, end: 20070817
  5. CALONAL [Concomitant]
     Indication: PYREXIA
     Dosage: 200 MG
     Route: 048
     Dates: start: 20070814, end: 20070816
  6. MUCODYNE [Concomitant]
     Indication: BRONCHITIS
     Dosage: 1500 MG
     Route: 048
     Dates: start: 20070814, end: 20070817
  7. ROCEPHIN [Concomitant]
     Dosage: 1 G
     Dates: start: 20070814, end: 20070817
  8. VITAMEDIN INTRAVENOUS [Concomitant]
     Dosage: UNK
     Dates: start: 20070814, end: 20070822
  9. ASCORBIC ACID [Concomitant]
     Dosage: 500 MG
     Dates: start: 20070815
  10. SOLITA T [Concomitant]
     Dosage: 500 ML
     Dates: start: 20070814, end: 20070817

REACTIONS (8)
  - ASPARTATE AMINOTRANSFERASE INCREASED [None]
  - BLOOD IMMUNOGLOBULIN E INCREASED [None]
  - BLOOD LACTATE DEHYDROGENASE INCREASED [None]
  - C-REACTIVE PROTEIN INCREASED [None]
  - HEPATIC FUNCTION ABNORMAL [None]
  - OROPHARYNGEAL PAIN [None]
  - PLATELET COUNT DECREASED [None]
  - PYREXIA [None]
